FAERS Safety Report 8431560-1 (Version None)
Quarter: 2012Q2

REPORT INFORMATION
  Report Type: 
  Country: None (occurrence: None)
  Receive Date: 20120613
  Receipt Date: 20120606
  Transmission Date: 20120825
  Serious: Yes (Other)
  Sender: FDA-Public Use
  Company Number: CA-BAYER-2012-055814

PATIENT
  Age: 55 Year
  Sex: Female
  Weight: 65.76 kg

DRUGS (8)
  1. CIPRO XR [Suspect]
     Dosage: 1000 MG, QD
     Route: 048
  2. CORTISONE ACETATE [Concomitant]
  3. WELLBUTRIN XL [Concomitant]
  4. CLONAZEPAM [Interacting]
     Route: 065
  5. BISOPROLOL FUMARATE [Concomitant]
  6. BUPRENORPHINE [Concomitant]
  7. BACLOFEN [Concomitant]
  8. NEXIUM [Concomitant]

REACTIONS (17)
  - ANXIETY [None]
  - HYPOAESTHESIA [None]
  - PALPITATIONS [None]
  - BALANCE DISORDER [None]
  - DRUG INTERACTION [None]
  - GAIT DISTURBANCE [None]
  - FEELING ABNORMAL [None]
  - HALLUCINATION, VISUAL [None]
  - NAUSEA [None]
  - DIZZINESS [None]
  - CONFUSIONAL STATE [None]
  - ARTHRALGIA [None]
  - MUSCLE SPASMS [None]
  - ASTHENIA [None]
  - DEHYDRATION [None]
  - PARAESTHESIA [None]
  - VOMITING [None]
